FAERS Safety Report 8920452 (Version 1)
Quarter: 2012Q4

REPORT INFORMATION
  Report Type: 
  Country: GB (occurrence: GB)
  Receive Date: 20121122
  Receipt Date: 20121122
  Transmission Date: 20130627
  Serious: Yes (Death)
  Sender: FDA-Public Use
  Company Number: PHHY2012GB105627

PATIENT
  Age: 54 Year
  Sex: Male

DRUGS (7)
  1. BLEOMYCIN [Suspect]
     Indication: HODGKIN^S DISEASE
     Route: 042
     Dates: start: 20120509, end: 20120929
  2. DOXORUBICIN [Suspect]
     Indication: HODGKIN^S DISEASE
     Route: 042
     Dates: start: 20120509, end: 20120929
  3. VINBLASTINE [Suspect]
     Indication: HODGKIN^S DISEASE
     Route: 042
     Dates: start: 20120509, end: 20120929
  4. DACARBAZINE [Suspect]
     Indication: HODGKIN^S DISEASE
     Route: 042
     Dates: start: 20120509, end: 20120929
  5. TRUVADA [Concomitant]
     Route: 048
  6. DARUNAVIR [Concomitant]
     Route: 048
  7. RITONAVIR [Concomitant]
     Route: 048

REACTIONS (2)
  - Respiratory failure [Fatal]
  - Hypoxia [Fatal]
